FAERS Safety Report 12140263 (Version 1)
Quarter: 2016Q1

REPORT INFORMATION
  Report Type: Spontaneous
  Country: US (occurrence: None)
  Receive Date: 20160302
  Receipt Date: 20160302
  Transmission Date: 20160526
  Serious: Yes (Other)
  Sender: FDA-Public Use
  Company Number: None

PATIENT
  Age: 30 Year
  Sex: Female
  Weight: 81.65 kg

DRUGS (6)
  1. ISENTRESS [Suspect]
     Active Substance: RALTEGRAVIR POTASSIUM
     Indication: INJURY ASSOCIATED WITH DEVICE
     Route: 048
     Dates: start: 20151010, end: 20151013
  2. TRUVADA [Suspect]
     Active Substance: EMTRICITABINE\TENOFOVIR DISOPROXIL FUMARATE
     Indication: PROPHYLAXIS AGAINST HIV INFECTION
     Dosage: 200-300MG QD PO
     Route: 048
     Dates: start: 20151010, end: 20151013
  3. TRUVADA [Concomitant]
     Active Substance: EMTRICITABINE\TENOFOVIR DISOPROXIL FUMARATE
  4. ISENTRESS [Concomitant]
     Active Substance: RALTEGRAVIR POTASSIUM
  5. SPIRONOLACTONE. [Concomitant]
     Active Substance: SPIRONOLACTONE
  6. LEVAQUIN [Concomitant]
     Active Substance: LEVOFLOXACIN

REACTIONS (8)
  - Asthma [None]
  - Swelling face [None]
  - Hypersensitivity [None]
  - Gait disturbance [None]
  - Vasculitis [None]
  - Swelling [None]
  - Neuropathy peripheral [None]
  - Back pain [None]

NARRATIVE: CASE EVENT DATE: 20151013
